FAERS Safety Report 24140571 (Version 1)
Quarter: 2024Q3

REPORT INFORMATION
  Report Type: Spontaneous
  Country: ES (occurrence: ES)
  Receive Date: 20240726
  Receipt Date: 20240726
  Transmission Date: 20241016
  Serious: Yes (Hospitalization, Other)
  Sender: AUROBINDO
  Company Number: ES-AEMPS-1549721

PATIENT
  Age: 84 Year
  Sex: Female
  Weight: 49 kg

DRUGS (4)
  1. FUROSEMIDE [Suspect]
     Active Substance: FUROSEMIDE
     Indication: Cardiac failure
     Dosage: 40 MILLIGRAM, ONCE A DAY, 1-0-0
     Route: 048
     Dates: start: 20230619, end: 20240612
  2. ENALAPRIL [Suspect]
     Active Substance: ENALAPRIL
     Indication: Cardiac failure
     Dosage: 2.5 MILLIGRAM, ONCE A DAY,1-0-0
     Route: 048
     Dates: start: 20231113, end: 20240612
  3. AMOXICILLIN\CLAVULANIC ACID [Concomitant]
     Active Substance: AMOXICILLIN\CLAVULANIC ACID
     Indication: Pneumonia
     Dosage: 1 COMPRIMIDO CADA 8H
     Route: 048
     Dates: start: 20240611, end: 20240616
  4. JARDIANCE [Concomitant]
     Active Substance: EMPAGLIFLOZIN
     Indication: Cardiac failure
     Dosage: 10 MILLIGRAM, ONCE A DAY, 1-0-0
     Route: 048
     Dates: start: 20231113

REACTIONS (1)
  - Acute kidney injury [Recovered/Resolved]

NARRATIVE: CASE EVENT DATE: 20240611
